FAERS Safety Report 17707835 (Version 1)
Quarter: 2020Q2

REPORT INFORMATION
  Report Type: Spontaneous
  Country: CN (occurrence: CN)
  Receive Date: 20200424
  Receipt Date: 20200424
  Transmission Date: 20200714
  Serious: Yes (Hospitalization, Other)
  Sender: FDA-Public Use
  Company Number: CN-PFIZER INC-2020160415

PATIENT
  Age: 97 Year
  Sex: Male

DRUGS (2)
  1. ZYVOX [Suspect]
     Active Substance: LINEZOLID
     Indication: ANTI-INFECTIVE THERAPY
     Dosage: 0.6 G, 2X/DAY
     Route: 041
     Dates: start: 20200408, end: 20200412
  2. SULPERAZON [Suspect]
     Active Substance: CEFOPERAZONE SODIUM\SULBACTAM SODIUM
     Indication: ANTI-INFECTIVE THERAPY
     Dosage: 3 G, 3X/DAY
     Route: 041
     Dates: start: 20200407, end: 20200412

REACTIONS (5)
  - International normalised ratio increased [Recovering/Resolving]
  - Haemorrhagic disorder [Recovering/Resolving]
  - Coagulation time prolonged [Recovering/Resolving]
  - Off label use [Unknown]
  - Platelet count decreased [Recovering/Resolving]

NARRATIVE: CASE EVENT DATE: 20200407
